FAERS Safety Report 7898854-X (Version None)
Quarter: 2011Q4

REPORT INFORMATION
  Report Type: 
  Country: None (occurrence: None)
  Receive Date: 20111107
  Receipt Date: 20111028
  Transmission Date: 20120403
  Serious: Yes (Other)
  Sender: FDA-Public Use
  Company Number: AT-ASTRAZENECA-2011SE65920

PATIENT
  Sex: Female

DRUGS (2)
  1. ATACAND [Suspect]
     Route: 048
  2. ATACAND [Suspect]
     Route: 048
     Dates: start: 20111001

REACTIONS (5)
  - OEDEMA PERIPHERAL [None]
  - BACK PAIN [None]
  - OVERDOSE [None]
  - CONVULSION [None]
  - MYALGIA [None]
